FAERS Safety Report 12716836 (Version 1)
Quarter: 2016Q3

REPORT INFORMATION
  Report Type: Spontaneous
  Country: US (occurrence: US)
  Receive Date: 20160902
  Receipt Date: 20160902
  Transmission Date: 20161109
  Serious: Yes (Other)
  Sender: FDA-Public Use
  Company Number: None

PATIENT
  Age: 70 Year
  Sex: Female
  Weight: 83.7 kg

DRUGS (10)
  1. SINGULAIR [Concomitant]
     Active Substance: MONTELUKAST SODIUM
  2. ASPIRIN. [Concomitant]
     Active Substance: ASPIRIN
  3. TUMS [Concomitant]
     Active Substance: CALCIUM CARBONATE
  4. ACIDOPHILUS [Concomitant]
     Active Substance: LACTOBACILLUS ACIDOPHILUS
  5. IPRATROPIUYM BROMIDE AND ALBUTER MYLAN [Suspect]
     Active Substance: ALBUTEROL SULFATE\IPRATROPIUM BROMIDE
     Indication: ASTHMA
     Dosage: OTHER STRENGTH:;OTHER DOSE:3ML VIAL;OTHER FREQUENCY:;OTHER ROUTE:
     Route: 055
     Dates: start: 20160721, end: 20160723
  6. ADVAIR 250 [Concomitant]
  7. POTASSIUM CITRATE. [Concomitant]
     Active Substance: POTASSIUM CITRATE
  8. CARDIZEM [Concomitant]
     Active Substance: DILTIAZEM HYDROCHLORIDE
  9. DIGOXIN. [Concomitant]
     Active Substance: DIGOXIN
  10. FAMOTIDINE. [Concomitant]
     Active Substance: FAMOTIDINE

REACTIONS (4)
  - Erythema [None]
  - Rash [None]
  - Urticaria [None]
  - Pruritus [None]

NARRATIVE: CASE EVENT DATE: 20160722
